FAERS Safety Report 11435123 (Version 1)
Quarter: 2015Q3

REPORT INFORMATION
  Report Type: Report from Study
  Country: IN (occurrence: IN)
  Receive Date: 20150831
  Receipt Date: 20150831
  Transmission Date: 20151125
  Serious: Yes (Hospitalization)
  Sender: FDA-Public Use
  Company Number: IN-WATSON-2015-14295

PATIENT
  Age: 29 Year
  Sex: Male
  Weight: 77 kg

DRUGS (1)
  1. BUDESONIDE (STUDY DRUG) [Suspect]
     Active Substance: BUDESONIDE
     Dosage: 9 MG ONE TIME ONLY
     Route: 048
     Dates: start: 20150610, end: 20150610

REACTIONS (1)
  - Cellulitis [Recovered/Resolved]

NARRATIVE: CASE EVENT DATE: 20150614
